FAERS Safety Report 5672020-0 (Version None)
Quarter: 2008Q1

REPORT INFORMATION
  Report Type: 
  Country: None (occurrence: None)
  Receive Date: 20080317
  Receipt Date: 20080317
  Transmission Date: 20080703
  Serious: Yes (Hospitalization)
  Sender: FDA-Public Use
  Company Number: None

PATIENT
  Age: 72 Year
  Sex: Male
  Weight: 75.2 kg

DRUGS (3)
  1. DOCETAXEL [Suspect]
     Indication: LUNG CANCER METASTATIC
     Dosage: 30 MG/M2 I.V. 1 PERWEEK
     Route: 042
     Dates: start: 20080314
  2. DEXAMETHASONE TAB [Concomitant]
  3. OXYCODONE AND ACETAMINOPHEN [Concomitant]

REACTIONS (1)
  - DRUG INTERACTION [None]
